FAERS Safety Report 5810632-1 (Version None)
Quarter: 2008Q3

REPORT INFORMATION
  Report Type: 
  Country: None (occurrence: None)
  Receive Date: 20080715
  Receipt Date: 20080703
  Transmission Date: 20090109
  Serious: Yes (Disabling)
  Sender: FDA-Public Use
  Company Number: AU-GENENTECH-264230

PATIENT
  Age: 62 Year
  Sex: Female

DRUGS (1)
  1. HERCEPTIN [Suspect]
     Indication: BREAST NEOPLASM
     Dosage: 600 MG, 1/MONTH
     Route: 042
     Dates: start: 20060914, end: 20080207

REACTIONS (1)
  - POLYARTHRITIS [None]
